FAERS Safety Report 18319076 (Version 1)
Quarter: 2020Q3

REPORT INFORMATION
  Report Type: Spontaneous
  Country: US (occurrence: US)
  Receive Date: 20200928
  Receipt Date: 20200928
  Transmission Date: 20201103
  Serious: Yes (Other)
  Sender: FDA-Public Use
  Company Number: US-LUPIN PHARMACEUTICALS INC.-2020-06562

PATIENT

DRUGS (2)
  1. PHENYTOIN SODIUM. [Suspect]
     Active Substance: PHENYTOIN SODIUM
     Indication: EPILEPSY
     Dosage: UNK
     Route: 064
  2. PHENYTOIN SODIUM. [Suspect]
     Active Substance: PHENYTOIN SODIUM
     Dosage: UNK
     Route: 063

REACTIONS (4)
  - Agitation neonatal [Unknown]
  - Drug withdrawal syndrome neonatal [Unknown]
  - Foetal exposure during pregnancy [Unknown]
  - Exposure via breast milk [Unknown]
